FAERS Safety Report 18258849 (Version 4)
Quarter: 2023Q4

REPORT INFORMATION
  Report Type: Spontaneous
  Country: US (occurrence: US)
  Receive Date: 20200911
  Receipt Date: 20231109
  Transmission Date: 20240110
  Serious: Yes (Hospitalization, Other)
  Sender: FDA-Public Use
  Company Number: US-GILEAD-2020-0494473

PATIENT
  Age: 66 Year
  Sex: Female
  Weight: 95.692 kg

DRUGS (95)
  1. VIREAD [Suspect]
     Active Substance: TENOFOVIR DISOPROXIL FUMARATE
     Indication: HIV infection
     Dosage: UNK
     Route: 048
     Dates: start: 2011
  2. VIREAD [Suspect]
     Active Substance: TENOFOVIR DISOPROXIL FUMARATE
     Dosage: UNK
     Route: 048
     Dates: start: 20080506, end: 201206
  3. VIREAD [Suspect]
     Active Substance: TENOFOVIR DISOPROXIL FUMARATE
     Dosage: UNK
     Route: 048
     Dates: start: 2006, end: 201208
  4. TRUVADA [Suspect]
     Active Substance: EMTRICITABINE\TENOFOVIR DISOPROXIL FUMARATE
     Indication: HIV infection
     Dosage: UNK
     Route: 048
     Dates: start: 2011
  5. TRUVADA [Suspect]
     Active Substance: EMTRICITABINE\TENOFOVIR DISOPROXIL FUMARATE
     Dosage: UNK
     Route: 048
     Dates: start: 20120828
  6. KALETRA [Concomitant]
     Active Substance: LOPINAVIR\RITONAVIR
  7. RETROVIR [Concomitant]
     Active Substance: ZIDOVUDINE
  8. ACETAMINOPHEN [Concomitant]
     Active Substance: ACETAMINOPHEN
  9. ACYCLOVIR [Concomitant]
     Active Substance: ACYCLOVIR
  10. ALBUTEROL SULFATE [Concomitant]
     Active Substance: ALBUTEROL SULFATE
  11. ALLOPURINOL [Concomitant]
     Active Substance: ALLOPURINOL
  12. ALPRAZOLAM [Concomitant]
     Active Substance: ALPRAZOLAM
  13. AMILORIDE [Concomitant]
     Active Substance: AMILORIDE
  14. AMLODIPINE [Concomitant]
     Active Substance: AMLODIPINE BESYLATE
  15. AMOXCLAV [AMOXICILLIN TRIHYDRATE;CLAVULANATE POTASSIUM] [Concomitant]
  16. AMOXICILLIN [Concomitant]
     Active Substance: AMOXICILLIN
  17. ARNUITY ELLIPTA [Concomitant]
     Active Substance: FLUTICASONE FUROATE
  18. ATORVASTATIN [Concomitant]
     Active Substance: ATORVASTATIN
  19. AVALIDE [Concomitant]
     Active Substance: HYDROCHLOROTHIAZIDE\IRBESARTAN
  20. AZITHROMYCIN [Concomitant]
     Active Substance: AZITHROMYCIN
  21. BACIDE [Concomitant]
  22. BENZONATATE [Concomitant]
     Active Substance: BENZONATATE
  23. CADUET [Concomitant]
     Active Substance: AMLODIPINE BESYLATE\ATORVASTATIN CALCIUM
  24. CALCIUM\VITAMIN D [Concomitant]
     Active Substance: CALCIUM\VITAMIN D
  25. CARVEDILOL [Concomitant]
     Active Substance: CARVEDILOL
  26. CEFDINIR [Concomitant]
     Active Substance: CEFDINIR
  27. CEFUROXIME [Concomitant]
     Active Substance: CEFUROXIME
  28. CETIRIZINE [Concomitant]
     Active Substance: CETIRIZINE HYDROCHLORIDE
  29. AMMONIUM CHLORIDE\DEXTROMETHORPHAN\SODIUM CITRATE [Concomitant]
     Active Substance: AMMONIUM CHLORIDE\DEXTROMETHORPHAN\SODIUM CITRATE
  30. CLINDAMYCIN [Concomitant]
     Active Substance: CLINDAMYCIN
  31. CLOBETASOL [Concomitant]
     Active Substance: CLOBETASOL
  32. CLONIDINE [Concomitant]
     Active Substance: CLONIDINE
  33. COLCRYS [Concomitant]
     Active Substance: COLCHICINE
  34. CYPROHEPTADINE [Concomitant]
     Active Substance: CYPROHEPTADINE
  35. DICYCLOMINE [Concomitant]
     Active Substance: DICYCLOMINE HYDROCHLORIDE
  36. DILEX-G 400 [Concomitant]
     Active Substance: DYPHYLLINE\GUAIFENESIN
  37. DIOVAN HCT [Concomitant]
     Active Substance: HYDROCHLOROTHIAZIDE\VALSARTAN
  38. DIPHENOXYLATE [Concomitant]
     Active Substance: DIPHENOXYLATE
  39. DIVALPROEX SODIUM [Concomitant]
     Active Substance: DIVALPROEX SODIUM
  40. DOXEPIN [Concomitant]
     Active Substance: DOXEPIN
  41. DOXYCYCLINE HYCLATE [Concomitant]
     Active Substance: DOXYCYCLINE HYCLATE
  42. ESOMEPRAZOLE MAGNESIUM [Concomitant]
     Active Substance: ESOMEPRAZOLE\ESOMEPRAZOLE MAGNESIUM\ESOMEPRAZOLE MAGNESIUM DIHYDRATE
  43. SELENIUM [Concomitant]
     Active Substance: SELENIUM
  44. FISH OIL [Concomitant]
     Active Substance: FISH OIL
  45. FLUCONAZOLE [Concomitant]
     Active Substance: FLUCONAZOLE
  46. FUROSEMIDE [Concomitant]
     Active Substance: FUROSEMIDE
  47. GLIPIZIDE [Concomitant]
     Active Substance: GLIPIZIDE
  48. GOLYTELY [Concomitant]
     Active Substance: POLYETHYLENE GLYCOL 3350\POTASSIUM CHLORIDE\SODIUM BICARBONATE\SODIUM CHLORIDE\SODIUM SULFATE
  49. HUMALOG [Concomitant]
     Active Substance: INSULIN LISPRO
  50. HYDRALAZINE [Concomitant]
     Active Substance: HYDRALAZINE HYDROCHLORIDE
  51. HYOSCYAMINE SULFATE [Concomitant]
     Active Substance: HYOSCYAMINE SULFATE
  52. JANUVIA [Concomitant]
     Active Substance: SITAGLIPTIN PHOSPHATE
  53. KLOR-CON [Concomitant]
     Active Substance: POTASSIUM CHLORIDE
  54. LANTUS [Concomitant]
     Active Substance: INSULIN GLARGINE
  55. LIPITOR [Concomitant]
     Active Substance: ATORVASTATIN CALCIUM
  56. LOSARTAN [Concomitant]
     Active Substance: LOSARTAN
  57. MAGNESIUM OXIDE [Concomitant]
     Active Substance: MAGNESIUM OXIDE
  58. METHYLPREDNISOLONE [Concomitant]
     Active Substance: METHYLPREDNISOLONE
  59. METOCLOPRAMIDE [Concomitant]
     Active Substance: METOCLOPRAMIDE
  60. METOPROLOL [Concomitant]
     Active Substance: METOPROLOL
  61. MEXILETINE [Concomitant]
     Active Substance: MEXILETINE
  62. NASONEX [Concomitant]
     Active Substance: MOMETASONE FUROATE
  63. NEOMYCIN;POLYMYXIN [Concomitant]
  64. AMOXICILLIN\CLARITHROMYCIN\ESOMEPRAZOLE [Concomitant]
     Active Substance: AMOXICILLIN\CLARITHROMYCIN\ESOMEPRAZOLE
  65. NITROGLYCERIN [Concomitant]
     Active Substance: NITROGLYCERIN
  66. NYSTATIN [Concomitant]
     Active Substance: NYSTATIN
  67. OFLOXACIN [Concomitant]
     Active Substance: OFLOXACIN
  68. OMEPRAZOLE [Concomitant]
     Active Substance: OMEPRAZOLE
  69. ONDANSETRON [Concomitant]
     Active Substance: ONDANSETRON
  70. PANTOPRAZOLE [Concomitant]
     Active Substance: PANTOPRAZOLE
  71. PEG 3350 [Concomitant]
     Active Substance: POLYETHYLENE GLYCOL 3350
  72. PHOSPHA 250 NEUTRAL [Concomitant]
     Active Substance: POTASSIUM PHOSPHATE, MONOBASIC\SODIUM PHOSPHATE, DIBASIC, ANHYDROUS\SODIUM PHOSPHATE, MONOBASIC, MON
  73. POLY HIST CB [Concomitant]
     Active Substance: GUAIFENESIN\PENTOXYVERINE CITRATE
  74. POTASSIUM CHLORIDE [Concomitant]
     Active Substance: POTASSIUM CHLORIDE
  75. PRANDIN E2 [Concomitant]
  76. PRAVASTATIN [Concomitant]
     Active Substance: PRAVASTATIN
  77. PREDNISOLONE [Concomitant]
     Active Substance: PREDNISOLONE
  78. PREDNISONE [Concomitant]
     Active Substance: PREDNISONE
  79. PROAIR HFA [Concomitant]
     Active Substance: ALBUTEROL SULFATE
  80. PROMETHAZINE [Concomitant]
     Active Substance: PROMETHAZINE HYDROCHLORIDE
  81. RANITIDINE [Concomitant]
     Active Substance: RANITIDINE
  82. SILENOR [Concomitant]
     Active Substance: DOXEPIN HYDROCHLORIDE
  83. SODIUM BICARBONATE [Concomitant]
     Active Substance: SODIUM BICARBONATE
  84. SUCRALFATE [Concomitant]
     Active Substance: SUCRALFATE
  85. SORBITOL [Concomitant]
     Active Substance: SORBITOL
  86. TEMAZEPAM [Concomitant]
     Active Substance: TEMAZEPAM
  87. TIZANIDINE [Concomitant]
     Active Substance: TIZANIDINE
  88. TOBRAMYCIN [Concomitant]
     Active Substance: TOBRAMYCIN
  89. TOPIRAMATE [Concomitant]
     Active Substance: TOPIRAMATE
  90. TRAZODONE [Concomitant]
     Active Substance: TRAZODONE HYDROCHLORIDE
  91. TRIAMCIN. ACETON.ACET., MICON.NIT.,NEOM.SULF. [Concomitant]
  92. ULORIC [Concomitant]
     Active Substance: FEBUXOSTAT
  93. VENTOLIN HFA [Concomitant]
     Active Substance: ALBUTEROL SULFATE
  94. ZIDOVUDINE [Concomitant]
     Active Substance: ZIDOVUDINE
  95. ZOLPIDEM [Concomitant]
     Active Substance: ZOLPIDEM TARTRATE

REACTIONS (12)
  - Acute kidney injury [Not Recovered/Not Resolved]
  - Pneumonia [Recovered/Resolved]
  - Bronchitis [Recovered/Resolved]
  - End stage renal disease [Not Recovered/Not Resolved]
  - Chronic kidney disease [Not Recovered/Not Resolved]
  - Nephropathy [Not Recovered/Not Resolved]
  - Hyperparathyroidism secondary [Not Recovered/Not Resolved]
  - Anaemia [Not Recovered/Not Resolved]
  - Pain [Not Recovered/Not Resolved]
  - Emotional distress [Not Recovered/Not Resolved]
  - Anxiety [Not Recovered/Not Resolved]
  - Anhedonia [Not Recovered/Not Resolved]

NARRATIVE: CASE EVENT DATE: 20110101
